FAERS Safety Report 5053324-1 (Version None)
Quarter: 2006Q3

REPORT INFORMATION
  Report Type: 
  Country: None (occurrence: None)
  Receive Date: 20060707
  Receipt Date: 20060608
  Transmission Date: 20061208
  Serious: No
  Sender: FDA-Public Use
  Company Number: 2006BH011579

PATIENT
  Age: 28 Year
  Sex: Male
  Weight: 90 kg

DRUGS (6)
  1. ADVATE (OCTOCOG ALFA) [Suspect]
     Indication: FACTOR VIII DEFICIENCY
     Dosage: 20 IU/KG; 3X A WEEK;  10 IU/KG; 2X A WEEK
     Dates: end: 20050401
  2. ADVATE (OCTOCOG ALFA) [Suspect]
     Indication: PROPHYLAXIS
     Dosage: 20 IU/KG; 3X A WEEK;  10 IU/KG; 2X A WEEK
     Dates: end: 20050401
  3. ADVATE (OCTOCOG ALFA) [Suspect]
     Indication: FACTOR VIII DEFICIENCY
     Dosage: 20 IU/KG; 3X A WEEK;  10 IU/KG; 2X A WEEK
     Dates: start: 20050417
  4. ADVATE (OCTOCOG ALFA) [Suspect]
     Indication: PROPHYLAXIS
     Dosage: 20 IU/KG; 3X A WEEK;  10 IU/KG; 2X A WEEK
     Dates: start: 20050417
  5. HUMAN FACTOR VIII [Concomitant]
  6. INFLUENZA VACCINE [Concomitant]

REACTIONS (1)
  - INFLUENZA LIKE ILLNESS [None]
